FAERS Safety Report 14746252 (Version 1)
Quarter: 2018Q2

REPORT INFORMATION
  Report Type: Spontaneous
  Country: US (occurrence: US)
  Receive Date: 20180411
  Receipt Date: 20180411
  Transmission Date: 20180711
  Serious: Yes (Death, Other)
  Sender: FDA-Public Use
  Company Number: US-ASTRAZENECA-2018SE43827

PATIENT
  Sex: Female

DRUGS (2)
  1. NEXIUM 24HR [Suspect]
     Active Substance: ESOMEPRAZOLE MAGNESIUM
     Route: 048
  2. NEXIUM [Suspect]
     Active Substance: ESOMEPRAZOLE MAGNESIUM
     Route: 048
     Dates: start: 1989, end: 20170510

REACTIONS (11)
  - Acute kidney injury [Unknown]
  - Renal failure [Unknown]
  - Chronic kidney disease [Unknown]
  - Acute coronary syndrome [Unknown]
  - End stage renal disease [Unknown]
  - Multiple organ dysfunction syndrome [Unknown]
  - Renal disorder [Unknown]
  - Cystitis interstitial [Unknown]
  - Dementia [Unknown]
  - Death [Fatal]
  - Tubulointerstitial nephritis [Unknown]
